FAERS Safety Report 18867931 (Version 1)
Quarter: 2021Q1

REPORT INFORMATION
  Report Type: Spontaneous
  Country: AR (occurrence: AR)
  Receive Date: 20210209
  Receipt Date: 20210209
  Transmission Date: 20210420
  Serious: Yes (Hospitalization, Other)
  Sender: FDA-Public Use
  Company Number: AR-MYLANLABS-2021M1008050

PATIENT
  Age: 49 Year
  Sex: Female

DRUGS (3)
  1. LAMIVUDINE. [Suspect]
     Active Substance: LAMIVUDINE
     Indication: HIV INFECTION
     Dosage: UNK
     Route: 065
  2. LOPINAVIR/RITONAVIR [Suspect]
     Active Substance: LOPINAVIR\RITONAVIR
     Indication: HIV INFECTION
     Dosage: UNK
     Route: 065
  3. TENOFOVIR [Suspect]
     Active Substance: TENOFOVIR
     Indication: HIV INFECTION
     Dosage: UNK
     Route: 065

REACTIONS (7)
  - Hypophosphataemic osteomalacia [Recovered/Resolved]
  - Pathological fracture [Unknown]
  - Mobility decreased [Recovered/Resolved]
  - Kyphosis [Recovered/Resolved]
  - Hypocalcaemia [Recovered/Resolved]
  - Scoliosis [Recovered/Resolved]
  - Fanconi syndrome acquired [Recovered/Resolved]
